FAERS Safety Report 9686782 (Version 1)
Quarter: 2013Q4

REPORT INFORMATION
  Report Type: Spontaneous
  Country: US (occurrence: US)
  Receive Date: 20131113
  Receipt Date: 20131113
  Transmission Date: 20140711
  Serious: Yes (Other)
  Sender: FDA-Public Use
  Company Number: US-BAYER-2013-138211

PATIENT
  Age: 24 Year
  Sex: Female
  Weight: 72.56 kg

DRUGS (3)
  1. MIRENA [Suspect]
     Dosage: 20 MCG/24HR, UNK
     Route: 015
     Dates: end: 20121124
  2. DESONIDE [Concomitant]
     Indication: PSORIASIS
     Dosage: UNK UNK, QD
  3. ONDANSETRON [Concomitant]
     Dosage: UNK UNK, PRN

REACTIONS (3)
  - Depression [None]
  - Ectopic pregnancy [Recovered/Resolved]
  - Drug ineffective [None]
